FAERS Safety Report 9045258 (Version 1)
Quarter: 2013Q1

REPORT INFORMATION
  Report Type: Report from Study
  Country: US (occurrence: US)
  Receive Date: 20130131
  Receipt Date: 20130131
  Transmission Date: 20140127
  Serious: Yes (Other)
  Sender: FDA-Public Use
  Company Number: US-ABBOTT-12P-163-0993065-00

PATIENT
  Age: 64 Year
  Sex: Female

DRUGS (7)
  1. HUMIRA [Suspect]
     Indication: RHEUMATOID ARTHRITIS
  2. XANAX [Concomitant]
     Indication: ANXIETY
  3. DEXILANT [Concomitant]
     Indication: GASTRIC DISORDER
  4. NAPROXEN [Concomitant]
     Indication: RHEUMATOID ARTHRITIS
  5. PLAQUENIL [Concomitant]
     Indication: ARTHRITIS
  6. ZANTAC [Concomitant]
     Indication: GASTRIC DISORDER
  7. SYMBICORT [Concomitant]
     Indication: PRODUCT USED FOR UNKNOWN INDICATION

REACTIONS (3)
  - Cataract [Recovering/Resolving]
  - Hypertension [Unknown]
  - Eye infection [Unknown]
